FAERS Safety Report 11292125 (Version 1)
Quarter: 2015Q3

REPORT INFORMATION
  Report Type: Spontaneous
  Country: US (occurrence: US)
  Receive Date: 20150722
  Receipt Date: 20150722
  Transmission Date: 20151125
  Serious: Yes (Other)
  Sender: FDA-Public Use
  Company Number: US-BAYER-2015-378375

PATIENT
  Age: 56 Year
  Sex: Female

DRUGS (3)
  1. MIRENA [Suspect]
     Active Substance: LEVONORGESTREL
     Indication: ABDOMINAL PAIN LOWER
     Dosage: 20 MCG/24HR, CONT
     Route: 015
     Dates: start: 20150316
  2. IBUPROFEN. [Concomitant]
     Active Substance: IBUPROFEN
     Indication: JOINT INJURY
     Dosage: 800 MG, UNK
  3. MIRENA [Suspect]
     Active Substance: LEVONORGESTREL
     Indication: MENORRHAGIA
     Dosage: 20 MCG/24HR, CONT
     Route: 015
     Dates: start: 2010, end: 201410

REACTIONS (7)
  - Genital haemorrhage [None]
  - Amenorrhoea [None]
  - Drug ineffective [None]
  - Genital haemorrhage [None]
  - Abdominal pain lower [None]
  - Abdominal pain lower [None]
  - Vaginal haemorrhage [None]

NARRATIVE: CASE EVENT DATE: 2010
